FAERS Safety Report 7633441-X (Version None)
Quarter: 2011Q3

REPORT INFORMATION
  Report Type: 
  Country: None (occurrence: None)
  Receive Date: 20110725
  Receipt Date: 20110720
  Transmission Date: 20111222
  Serious: Yes (Death)
  Sender: FDA-Public Use
  Company Number: AU-ASTRAZENECA-2010SE17834

PATIENT
  Age: 75 Year
  Sex: Male

DRUGS (1)
  1. ZOLADEX [Suspect]
     Indication: PROSTATE CANCER
     Route: 058
     Dates: start: 20090601

REACTIONS (5)
  - DEATH [None]
  - FATIGUE [None]
  - LOSS OF LIBIDO [None]
  - SKIN DISCOLOURATION [None]
  - HOT FLUSH [None]
